FAERS Safety Report 5695940-X (Version None)
Quarter: 2008Q2

REPORT INFORMATION
  Report Type: 
  Country: None (occurrence: None)
  Receive Date: 20080407
  Receipt Date: 20080404
  Transmission Date: 20081010
  Serious: Yes (Other)
  Sender: FDA-Public Use
  Company Number: US-BRISTOL-MYERS SQUIBB COMPANY-14139315

PATIENT
  Age: 75 Year
  Sex: Male
  Weight: 102 kg

DRUGS (4)
  1. COUMADIN [Suspect]
  2. ASPIRIN [Suspect]
     Indication: PROPHYLAXIS
     Route: 048
  3. ONE-A-DAY MENS 50+ADVANTAGE [Suspect]
     Indication: VITAMIN SUPPLEMENTATION
     Route: 048
  4. ONE-A-DAY MENS HEALTH FORMULA [Suspect]
     Indication: VITAMIN SUPPLEMENTATION
     Route: 048
     Dates: start: 20020101, end: 20071201

REACTIONS (1)
  - GASTRIC ULCER [None]
